FAERS Safety Report 6694795-4 (Version None)
Quarter: 2010Q2

REPORT INFORMATION
  Report Type: 
  Country: None (occurrence: None)
  Receive Date: 20100423
  Receipt Date: 20100413
  Transmission Date: 20101027
  Serious: No
  Sender: FDA-Public Use
  Company Number: US-JNJFOC-20100403767

PATIENT
  Sex: Female
  Weight: 95.26 kg

DRUGS (3)
  1. FENTANYL CITRATE [Suspect]
     Indication: BACK PAIN
     Route: 062
  2. XANAX [Concomitant]
     Indication: ANXIETY
     Route: 048
  3. ROBAXIN [Concomitant]
     Indication: MUSCLE SPASMS
     Route: 048

REACTIONS (2)
  - INADEQUATE ANALGESIA [None]
  - WRONG TECHNIQUE IN DRUG USAGE PROCESS [None]
